FAERS Safety Report 5750686-4 (Version None)
Quarter: 2008Q2

REPORT INFORMATION
  Report Type: 
  Country: None (occurrence: None)
  Receive Date: 20080528
  Receipt Date: 20080519
  Transmission Date: 20081010
  Serious: Yes (Other)
  Sender: FDA-Public Use
  Company Number: JP-JNJFOC-20080503832

PATIENT
  Age: 96 Year
  Sex: Male

DRUGS (1)
  1. POLLAKISU [Suspect]
     Indication: POLLAKIURIA
     Route: 065

REACTIONS (1)
  - DELIRIUM [None]
